FAERS Safety Report 7472671-7 (Version None)
Quarter: 2011Q1

REPORT INFORMATION
  Report Type: 
  Country: None (occurrence: None)
  Receive Date: 20110302
  Receipt Date: 20101215
  Transmission Date: 20110831
  Serious: Yes (Other)
  Sender: FDA-Public Use
  Company Number: 163-21880-10070684

PATIENT

DRUGS (3)
  1. REVLIMID [Suspect]
     Indication: MULTIPLE MYELOMA
     Dosage: 25 MG, DAYS 1-21 OF A 28 DAY CYCLE, PO
     Route: 048
  2. ELOTUZUMAB (ELOTUZUMAB) (UNKNOWN) [Suspect]
     Indication: MULTIPLE MYELOMA
     Dosage: 5, 10 AND 20 MG/KG, DAYS 1, 8, 15 AND 22 OF THE 28D CYCLE, IV
     Route: 042
  3. DEXAMETHASONE [Suspect]
     Indication: MULTIPLE MYELOMA
     Dosage: 40 MG, WEEKLY, PO
     Route: 048

REACTIONS (18)
  - ANAEMIA [None]
  - THROMBOCYTOPENIA [None]
  - CHILLS [None]
  - NAUSEA [None]
  - HYPERSENSITIVITY [None]
  - FATIGUE [None]
  - DYSPNOEA [None]
  - FEBRILE NEUTROPENIA [None]
  - DIARRHOEA [None]
  - DIVERTICULAR PERFORATION [None]
  - ASTHENIA [None]
  - NEUTROPENIA [None]
  - PYREXIA [None]
  - MUSCLE SPASMS [None]
  - STRIDOR [None]
  - ATRIAL FIBRILLATION [None]
  - SEPSIS [None]
  - ENTERITIS [None]
